FAERS Safety Report 15652086 (Version 2)
Quarter: 2019Q1

REPORT INFORMATION
  Report Type: Report from Study
  Country: None (occurrence: US)
  Receive Date: 20181123
  Receipt Date: 20190115
  Transmission Date: 20190417
  Serious: Yes (Hospitalization, Other)
  Sender: FDA-Public Use
  Company Number: US-ABBVIE-18K-163-2558805-00

PATIENT
  Age: 60 Year
  Sex: Male
  Weight: 138.74 kg

DRUGS (4)
  1. LEXISCAN [Concomitant]
     Active Substance: REGADENOSON
     Indication: PRODUCT USED FOR UNKNOWN INDICATION
     Route: 042
  2. HUMIRA [Suspect]
     Active Substance: ADALIMUMAB
     Route: 058
     Dates: start: 201803, end: 201809
  3. HUMIRA [Suspect]
     Active Substance: ADALIMUMAB
     Route: 058
     Dates: start: 20181104
  4. HUMIRA [Suspect]
     Active Substance: ADALIMUMAB
     Indication: PSORIASIS
     Route: 058
     Dates: start: 2016, end: 2017

REACTIONS (8)
  - Cardiomegaly [Unknown]
  - Diabetes mellitus [Unknown]
  - Atelectasis [Unknown]
  - Hypertension [Unknown]
  - Cardiomyopathy [Unknown]
  - Pulmonary fibrosis [Unknown]
  - Chest pain [Unknown]
  - Cellulitis [Unknown]

NARRATIVE: CASE EVENT DATE: 201809
